FAERS Safety Report 7668581-2 (Version None)
Quarter: 2011Q3

REPORT INFORMATION
  Report Type: 
  Country: None (occurrence: None)
  Receive Date: 20110808
  Receipt Date: 20110808
  Transmission Date: 20111222
  Serious: Yes (Hospitalization)
  Sender: FDA-Public Use
  Company Number: None

PATIENT
  Age: 51 Year
  Sex: Female
  Weight: 66.678 kg

DRUGS (1)
  1. HUMIRA [Suspect]
     Dosage: UNKNOWN

REACTIONS (2)
  - PHOTOPHOBIA [None]
  - SUBDURAL HAEMORRHAGE [None]
